FAERS Safety Report 24078379 (Version 3)
Quarter: 2024Q4

REPORT INFORMATION
  Report Type: Spontaneous
  Country: DE (occurrence: DE)
  Receive Date: 20240711
  Receipt Date: 20241205
  Transmission Date: 20250115
  Serious: Yes (Other)
  Sender: SANDOZ
  Company Number: DE-SA-2019SA351825

PATIENT
  Age: 15 Year
  Sex: Male

DRUGS (51)
  1. ALEMTUZUMAB [Suspect]
     Active Substance: ALEMTUZUMAB
     Dosage: 0.2 MG/KG, QD; (DAYS -9 AND -8)
     Route: 065
  2. ALEMTUZUMAB [Suspect]
     Active Substance: ALEMTUZUMAB
     Indication: Bone marrow conditioning regimen
     Dosage: 2X0.2 MG/KG/DAY (DAYS -9 TO -8)
     Route: 065
  3. ALEMTUZUMAB [Suspect]
     Active Substance: ALEMTUZUMAB
     Indication: Bone marrow conditioning regimen
     Dosage: 0.2 MG/KG, BID; (DAYS -9 AND -8)
     Route: 065
  4. ALEMTUZUMAB [Suspect]
     Active Substance: ALEMTUZUMAB
     Indication: Prophylaxis against transplant rejection
  5. ALEMTUZUMAB [Suspect]
     Active Substance: ALEMTUZUMAB
     Indication: Thalassaemia
  6. CYCLOPHOSPHAMIDE [Suspect]
     Active Substance: CYCLOPHOSPHAMIDE
     Indication: Prophylaxis against graft versus host disease
     Dosage: 14.5 MG/KG, QD; (DAY -3 TO -2)
     Route: 065
  7. CYCLOPHOSPHAMIDE [Suspect]
     Active Substance: CYCLOPHOSPHAMIDE
     Indication: Graft versus host disease
     Dosage: 2 X 14.5 MG/KG/D (DAYS -3 TO -2)
     Route: 065
  8. CYCLOPHOSPHAMIDE [Suspect]
     Active Substance: CYCLOPHOSPHAMIDE
     Indication: Bone marrow conditioning regimen
     Dosage: 50 MG/KG, QD (DAY +3 AND +4)
     Route: 065
  9. CYCLOPHOSPHAMIDE [Suspect]
     Active Substance: CYCLOPHOSPHAMIDE
     Indication: Bone marrow conditioning regimen
  10. CYCLOPHOSPHAMIDE [Suspect]
     Active Substance: CYCLOPHOSPHAMIDE
     Indication: Graft versus host disease
  11. CYCLOPHOSPHAMIDE [Suspect]
     Active Substance: CYCLOPHOSPHAMIDE
     Indication: Prophylaxis against graft versus host disease
  12. CYCLOPHOSPHAMIDE [Suspect]
     Active Substance: CYCLOPHOSPHAMIDE
     Indication: Thalassaemia
  13. CYCLOPHOSPHAMIDE [Suspect]
     Active Substance: CYCLOPHOSPHAMIDE
     Indication: Thalassaemia
  14. FLUDARABINE [Suspect]
     Active Substance: FLUDARABINE PHOSPHATE
     Indication: Bone marrow conditioning regimen
     Dosage: 5X30 MG/M2/DAY (DAYS -7 TO -3)
     Route: 065
  15. FLUDARABINE [Suspect]
     Active Substance: FLUDARABINE PHOSPHATE
     Indication: Prophylaxis against transplant rejection
     Dosage: UNK30 MG/M2, QD; (ON DAYS -7 TO -3)
     Route: 065
  16. FLUDARABINE [Suspect]
     Active Substance: FLUDARABINE PHOSPHATE
     Indication: Thalassaemia
  17. FLUDARABINE PHOSPHATE [Suspect]
     Active Substance: FLUDARABINE PHOSPHATE
     Dosage: 5X30 MG/M2/DAY (DAYS -7 TO -3)
     Route: 065
  18. FLUDARABINE PHOSPHATE [Suspect]
     Active Substance: FLUDARABINE PHOSPHATE
     Indication: Thalassaemia
     Dosage: 150 MG/M2, QD; (ON DAYS -7 TO -3)
     Route: 065
  19. FLUDARABINE PHOSPHATE [Suspect]
     Active Substance: FLUDARABINE PHOSPHATE
     Indication: Bone marrow conditioning regimen
     Dosage: 5 X 30 MG/M2/D (DAYS -7 TO -3)
     Route: 065
  20. FLUDARABINE PHOSPHATE [Suspect]
     Active Substance: FLUDARABINE PHOSPHATE
     Indication: Prophylaxis against transplant rejection
     Dosage: 5 X 30 MG/M2/D (DAYS -7 TO -3)
     Route: 065
  21. FLUDARABINE PHOSPHATE [Suspect]
     Active Substance: FLUDARABINE PHOSPHATE
     Dosage: 5 X 30 MG/M2/D (DAYS -7 TO -3)
     Route: 065
  22. FLUDARABINE PHOSPHATE [Suspect]
     Active Substance: FLUDARABINE PHOSPHATE
     Dosage: 5 X 30 MG/M2/D (DAYS -7 TO -3)
     Route: 065
  23. MYCOPHENOLATE MOFETIL [Suspect]
     Active Substance: MYCOPHENOLATE MOFETIL
     Indication: Prophylaxis against graft versus host disease
     Dosage: 3X15MG/KG/DAY (DAYS+5 TO +35)
     Route: 065
  24. MYCOPHENOLATE MOFETIL [Suspect]
     Active Substance: MYCOPHENOLATE MOFETIL
     Indication: Prophylaxis against graft versus host disease
     Dosage: 15 MG/KG, TID; PO OR IV; DAYS +5 TO +100
     Route: 065
  25. MYCOPHENOLATE MOFETIL [Suspect]
     Active Substance: MYCOPHENOLATE MOFETIL
     Indication: Prophylaxis against transplant rejection
  26. MYCOPHENOLATE MOFETIL [Suspect]
     Active Substance: MYCOPHENOLATE MOFETIL
     Indication: Prophylaxis against transplant rejection
  27. RITUXIMAB [Suspect]
     Active Substance: RITUXIMAB
     Indication: Sickle cell disease
     Dosage: UNK
     Route: 065
  28. RITUXIMAB [Suspect]
     Active Substance: RITUXIMAB
     Route: 065
  29. TACROLIMUS [Suspect]
     Active Substance: TACROLIMUS
     Indication: Prophylaxis against graft versus host disease
     Dosage: UNK (PO AND IV(DAY +5 TO +100 WITH CONSECUTIVE TAPERING)
     Route: 065
  30. TACROLIMUS [Suspect]
     Active Substance: TACROLIMUS
     Indication: Prophylaxis against graft versus host disease
     Dosage: DAYS +5 TO +100 WITH CONSECUTIVE TAPERING
     Route: 065
  31. TACROLIMUS [Suspect]
     Active Substance: TACROLIMUS
     Indication: Prophylaxis against transplant rejection
  32. TACROLIMUS [Suspect]
     Active Substance: TACROLIMUS
     Indication: Prophylaxis against transplant rejection
  33. THIOTEPA [Suspect]
     Active Substance: THIOTEPA
     Dosage: 5 MG/KG; DAY -4
     Route: 065
  34. THIOTEPA [Suspect]
     Active Substance: THIOTEPA
     Indication: Bone marrow conditioning regimen
     Dosage: 5 MG/KG; DAY 4
     Route: 065
  35. THIOTEPA [Suspect]
     Active Substance: THIOTEPA
     Indication: Prophylaxis against transplant rejection
     Dosage: UNKX5 MG/KG (DAY -4)
     Route: 065
  36. THIOTEPA [Suspect]
     Active Substance: THIOTEPA
     Indication: Prophylaxis against transplant rejection
  37. THIOTEPA [Suspect]
     Active Substance: THIOTEPA
     Indication: Thalassaemia
  38. TREOSULFAN [Suspect]
     Active Substance: TREOSULFAN
     Indication: Bone marrow conditioning regimen
     Dosage: 3 X 14 G/M2/D (DAYS -7 TO -5)
     Route: 065
  39. TREOSULFAN [Suspect]
     Active Substance: TREOSULFAN
     Indication: Thalassaemia
     Dosage: 14 G/M2, QD (DAY 7 TO 5)
     Route: 065
  40. TREOSULFAN [Suspect]
     Active Substance: TREOSULFAN
     Dosage: 3X14 G/M2/DAY (DAYS -7 TO -5)
     Route: 065
  41. TREOSULFAN [Suspect]
     Active Substance: TREOSULFAN
     Indication: Thalassaemia
     Dosage: 14 G/M2, QD; DAY -7 TO -5
     Route: 065
  42. TREOSULFAN [Suspect]
     Active Substance: TREOSULFAN
     Indication: Prophylaxis against transplant rejection
  43. GRANULOCYTE COLONY-STIMULATING FACTOR NOS [Concomitant]
     Active Substance: GRANULOCYTE COLONY-STIMULATING FACTOR NOS
     Indication: Bone marrow conditioning regimen
     Dosage: 5 UG/KG, QD
     Route: 065
  44. GRANULOCYTE COLONY-STIMULATING FACTOR NOS [Concomitant]
     Active Substance: GRANULOCYTE COLONY-STIMULATING FACTOR NOS
     Indication: Product used for unknown indication
     Dosage: 5 UG/KG, QD
     Route: 065
  45. GRANULOCYTE COLONY-STIMULATING FACTOR NOS [Concomitant]
     Active Substance: GRANULOCYTE COLONY-STIMULATING FACTOR NOS
     Dosage: 5 UG/KG, QD
     Route: 065
  46. GRANULOCYTE COLONY-STIMULATING FACTOR NOS [Concomitant]
     Active Substance: GRANULOCYTE COLONY-STIMULATING FACTOR NOS
     Dosage: 5 UG/KG, QD
     Route: 065
  47. GRANULOCYTE COLONY-STIMULATING FACTOR NOS [Concomitant]
     Active Substance: GRANULOCYTE COLONY-STIMULATING FACTOR NOS
     Dosage: 5 UG/KG, QD
     Route: 065
  48. GRANULOCYTE COLONY-STIMULATING FACTOR NOS [Concomitant]
     Active Substance: GRANULOCYTE COLONY-STIMULATING FACTOR NOS
     Dosage: 5 UG/KG, QD
     Route: 065
  49. GRANULOCYTE COLONY-STIMULATING FACTOR NOS [Concomitant]
     Active Substance: GRANULOCYTE COLONY-STIMULATING FACTOR NOS
     Dosage: 5 UG/KG, QD
     Route: 065
  50. GRANULOCYTE COLONY-STIMULATING FACTOR NOS [Concomitant]
     Active Substance: GRANULOCYTE COLONY-STIMULATING FACTOR NOS
     Dosage: 5 UG/KG, QD
     Route: 065
  51. GRANULOCYTE COLONY-STIMULATING FACTOR NOS [Concomitant]
     Active Substance: GRANULOCYTE COLONY-STIMULATING FACTOR NOS
     Dosage: 5 UG/KG, QD
     Route: 065

REACTIONS (4)
  - Cytomegalovirus infection reactivation [Unknown]
  - Off label use [Unknown]
  - Off label use [Unknown]
  - Off label use [Unknown]
